FAERS Safety Report 4743497-X (Version None)
Quarter: 2005Q3

REPORT INFORMATION
  Report Type: 
  Country: None (occurrence: None)
  Receive Date: 20050809
  Receipt Date: 20050728
  Transmission Date: 20060218
  Serious: Yes (Other)
  Sender: FDA-Public Use
  Company Number: 2005108465

PATIENT
  Sex: 0

DRUGS (2)
  1. CABARGOLINE (CABERGOLINE) [Suspect]
     Indication: PITUITARY TUMOUR
     Dosage: (500 MCG, TWICE A WEEK)
  2. DEXAMETHASONE [Suspect]
     Indication: PITUITARY TUMOUR

REACTIONS (1)
  - PSYCHOTIC DISORDER [None]
